FAERS Safety Report 10531917 (Version 1)
Quarter: 2014Q4

REPORT INFORMATION
  Report Type: Spontaneous
  Country: US (occurrence: US)
  Receive Date: 20141021
  Receipt Date: 20141021
  Transmission Date: 20150529
  Serious: No
  Sender: FDA-Public Use
  Company Number: US-PURDUE-USA-2014-0113272

PATIENT
  Sex: Female

DRUGS (1)
  1. OXYCONTIN [Suspect]
     Active Substance: OXYCODONE HYDROCHLORIDE
     Indication: CANCER PAIN
     Route: 048

REACTIONS (6)
  - Nausea [Unknown]
  - Pain [Unknown]
  - Abdominal pain upper [Unknown]
  - Paraesthesia [Unknown]
  - Dizziness [Unknown]
  - Pruritus [Unknown]
